FAERS Safety Report 11184998 (Version 1)
Quarter: 2015Q2

REPORT INFORMATION
  Report Type: Spontaneous
  Country: US (occurrence: US)
  Receive Date: 20150612
  Receipt Date: 20150612
  Transmission Date: 20150821
  Serious: Yes (Other)
  Sender: FDA-Public Use
  Company Number: US-CELGENE-USA-2015060436

PATIENT

DRUGS (3)
  1. TRASTUZUMAB [Suspect]
     Active Substance: TRASTUZUMAB
     Indication: BREAST CANCER STAGE IV
     Route: 065
  2. LAPATINIB [Suspect]
     Active Substance: LAPATINIB
     Indication: BREAST CANCER STAGE IV
     Route: 065
  3. ABRAXANE [Suspect]
     Active Substance: PACLITAXEL
     Indication: BREAST CANCER STAGE IV
     Dosage: 80 MILLIGRAM/SQ. METER
     Route: 050

REACTIONS (6)
  - Transaminases increased [Unknown]
  - Liver function test abnormal [Unknown]
  - Diarrhoea [Unknown]
  - Mucosal inflammation [Unknown]
  - Neutropenia [Unknown]
  - Thrombocytopenia [Unknown]
